FAERS Safety Report 12009868 (Version 2)
Quarter: 2016Q1

REPORT INFORMATION
  Report Type: Report from Study
  Country: FR (occurrence: FR)
  Receive Date: 20160205
  Receipt Date: 20160322
  Transmission Date: 20160526
  Serious: Yes (Hospitalization)
  Sender: FDA-Public Use
  Company Number: PHHO2016FR001769

PATIENT

DRUGS (3)
  1. BLINDED ACZ885 [Suspect]
     Active Substance: CANAKINUMAB
     Indication: PYREXIA
     Dosage: DOUBLE BLINDED
     Route: 065
     Dates: start: 20150302
  2. BLINDED NO TREATMENT RECEIVED [Suspect]
     Active Substance: INVESTIGATIONAL PRODUCT
     Indication: PYREXIA
     Dosage: DOUBLE BLINDED
     Route: 065
     Dates: start: 20150302
  3. BLINDED PLACEBO [Suspect]
     Active Substance: INVESTIGATIONAL PRODUCT
     Indication: PYREXIA
     Dosage: DOUBLE BLINDED
     Route: 065
     Dates: start: 20150302

REACTIONS (1)
  - Laryngitis [Recovered/Resolved]

NARRATIVE: CASE EVENT DATE: 20151025
